FAERS Safety Report 7021543-0 (Version None)
Quarter: 2010Q3

REPORT INFORMATION
  Report Type: 
  Country: None (occurrence: None)
  Receive Date: 20100928
  Receipt Date: 20100916
  Transmission Date: 20110219
  Serious: Yes (Other)
  Sender: FDA-Public Use
  Company Number: 2010MA002729

PATIENT
  Sex: Female

DRUGS (1)
  1. METOCLOPRAMIDE [Suspect]
     Dosage: PO
     Route: 048

REACTIONS (10)
  - ACTIVITIES OF DAILY LIVING IMPAIRED [None]
  - ANXIETY [None]
  - DYSKINESIA [None]
  - ECONOMIC PROBLEM [None]
  - GRAND MAL CONVULSION [None]
  - HEADACHE [None]
  - INJURY [None]
  - PAIN [None]
  - TARDIVE DYSKINESIA [None]
  - TREMOR [None]
